FAERS Safety Report 5022736-4 (Version None)
Quarter: 2006Q2

REPORT INFORMATION
  Report Type: 
  Country: None (occurrence: None)
  Receive Date: 20060609
  Receipt Date: 20060602
  Transmission Date: 20061013
  Serious: Yes (Hospitalization)
  Sender: FDA-Public Use
  Company Number: FR-ABBOTT-06P-056-0335176-00

PATIENT
  Age: 55 Year
  Sex: Female
  Weight: 82 kg

DRUGS (12)
  1. HUMIRA [Suspect]
     Indication: POLYARTHRITIS
     Route: 058
     Dates: start: 20051015
  2. CLOPIDOGREL [Concomitant]
     Indication: MYOCARDIAL ISCHAEMIA
     Route: 048
  3. AURANOFIN [Concomitant]
     Indication: ARTHRITIS
     Route: 048
  4. HYDROXYCHLOROQUINE SULFATE [Concomitant]
     Indication: ARTHRITIS
     Route: 048
  5. PREDNISONE [Concomitant]
     Indication: ARTHRITIS
     Route: 048
  6. NICORANDIL [Concomitant]
     Indication: MYOCARDIAL ISCHAEMIA
     Route: 048
  7. EZETIMIBE [Concomitant]
     Indication: DRUG USE FOR UNKNOWN INDICATION
  8. FLUOXETINE [Concomitant]
     Indication: DRUG USE FOR UNKNOWN INDICATION
  9. OMEPRAZOLE [Concomitant]
     Indication: DRUG USE FOR UNKNOWN INDICATION
  10. MORPHINE SULFATE [Concomitant]
     Indication: DRUG USE FOR UNKNOWN INDICATION
  11. GOLD SALT [Concomitant]
     Indication: ARTHRITIS
  12. VERAPAMIL [Concomitant]
     Indication: DRUG USE FOR UNKNOWN INDICATION

REACTIONS (3)
  - HYPERPHAGIA [None]
  - METABOLIC DISORDER [None]
  - WEIGHT INCREASED [None]
